FAERS Safety Report 5600944-9 (Version None)
Quarter: 2008Q1

REPORT INFORMATION
  Report Type: 
  Country: None (occurrence: None)
  Receive Date: 20080124
  Receipt Date: 20080116
  Transmission Date: 20080703
  Serious: Yes (Hospitalization, Other)
  Sender: FDA-Public Use
  Company Number: PHEH2008US00477

PATIENT
  Age: 57 Year
  Sex: Female
  Weight: 62.585 kg

DRUGS (7)
  1. ZOMETA [Suspect]
     Indication: METASTASES TO BONE
     Dosage: 4 MG EVERY 4 WEEKS
     Dates: start: 20051010, end: 20071114
  2. CALCIUM W/VITAMIN D NOS [Concomitant]
     Dosage: UNK, BID
     Route: 048
     Dates: start: 20030101
  3. VITAMIN CAP [Concomitant]
     Dosage: UNK, QD
     Dates: start: 20030101
  4. GEMZAR [Concomitant]
     Indication: BREAST CANCER
     Dates: start: 20060118, end: 20060601
  5. ABRAXANE [Concomitant]
     Indication: BREAST CANCER
     Dosage: UNK, UNK
     Dates: start: 20060801, end: 20071114
  6. FASLODEX [Concomitant]
     Indication: BREAST CANCER
     Dates: start: 20051010, end: 20060105
  7. CARBOPLATIN [Concomitant]
     Indication: BREAST CANCER
     Dates: start: 20060118, end: 20060601

REACTIONS (12)
  - ANAEMIA [None]
  - ARTHRALGIA [None]
  - ASCITES [None]
  - BONE DISORDER [None]
  - CHONDROMALACIA [None]
  - GAIT DISTURBANCE [None]
  - HYPERCALCAEMIA OF MALIGNANCY [None]
  - JOINT EFFUSION [None]
  - MUSCULAR WEAKNESS [None]
  - NEOPLASM MALIGNANT [None]
  - OSTEOARTHRITIS [None]
  - OSTEONECROSIS [None]
